FAERS Safety Report 7967109-7 (Version None)
Quarter: 2011Q4

REPORT INFORMATION
  Report Type: 
  Country: None (occurrence: None)
  Receive Date: 20111205
  Receipt Date: 20111117
  Transmission Date: 20120403
  Serious: Yes (Other)
  Sender: FDA-Public Use
  Company Number: 2011AP002300

PATIENT
  Age: 39 Year
  Sex: Female

DRUGS (1)
  1. CITALOPRAM HYDROBROMIDE [Suspect]
     Dosage: 20 MG; PO
     Route: 048
     Dates: start: 20110720, end: 20110720

REACTIONS (5)
  - GLOMERULAR FILTRATION RATE DECREASED [None]
  - BLOOD PRESSURE INCREASED [None]
  - PROTEINURIA [None]
  - HYPERSENSITIVITY [None]
  - SWELLING [None]
